FAERS Safety Report 8011151-7 (Version None)
Quarter: 2011Q4

REPORT INFORMATION
  Report Type: 
  Country: None (occurrence: None)
  Receive Date: 20111228
  Receipt Date: 20111222
  Transmission Date: 20120403
  Serious: Yes (Other)
  Sender: FDA-Public Use
  Company Number: PHHY2011DE101441

PATIENT
  Age: 14 Year
  Sex: Female
  Weight: 45 kg

DRUGS (2)
  1. GILENYA [Suspect]
     Indication: MULTIPLE SCLEROSIS
     Dosage: 0.5 MG, QD
     Route: 048
     Dates: start: 20111019
  2. AMITRIPTYLINE [Concomitant]
     Indication: DEPRESSED MOOD
     Dosage: 10 MG, QD
     Route: 048
     Dates: start: 20111102

REACTIONS (10)
  - HYPOAESTHESIA [None]
  - ABDOMINAL DISCOMFORT [None]
  - FEELING HOT [None]
  - FEELING COLD [None]
  - DECREASED APPETITE [None]
  - PYREXIA [None]
  - HEADACHE [None]
  - SENSORY DISTURBANCE [None]
  - BACK PAIN [None]
  - DIARRHOEA [None]
